FAERS Safety Report 13614612 (Version 2)
Quarter: 2017Q2

REPORT INFORMATION
  Report Type: Spontaneous
  Country: KR (occurrence: KR)
  Receive Date: 20170606
  Receipt Date: 20170621
  Transmission Date: 20170830
  Serious: Yes (Other)
  Sender: FDA-Public Use
  Company Number: KR-PFIZER INC-2017239896

PATIENT
  Age: 60 Year
  Sex: Male

DRUGS (4)
  1. DOXORUBICIN HCL [Suspect]
     Active Substance: DOXORUBICIN HYDROCHLORIDE
     Indication: OSTEOSARCOMA
     Dosage: UNK, CYCLIC (FOUR CYCLES)
  2. CISPLATIN. [Suspect]
     Active Substance: CISPLATIN
     Dosage: UNK, CYCLIC (TWO CYCLES)
  3. IFOSFAMIDE. [Suspect]
     Active Substance: IFOSFAMIDE
     Indication: OSTEOSARCOMA
     Dosage: UNK, CYCLIC (TWO CYCLES)
  4. CISPLATIN. [Suspect]
     Active Substance: CISPLATIN
     Indication: OSTEOSARCOMA
     Dosage: UNK, CYCLIC (FOUR CYCLES)

REACTIONS (2)
  - Acute myeloid leukaemia [Unknown]
  - Second primary malignancy [Unknown]
